FAERS Safety Report 13728544 (Version 1)
Quarter: 2017Q3

REPORT INFORMATION
  Report Type: Spontaneous
  Country: US (occurrence: US)
  Receive Date: 20170707
  Receipt Date: 20170707
  Transmission Date: 20171127
  Serious: No
  Sender: FDA-Public Use
  Company Number: None

PATIENT

DRUGS (2)
  1. BUPIVACAINE. [Concomitant]
     Active Substance: BUPIVACAINE
  2. FENTANYL. [Suspect]
     Active Substance: FENTANYL
     Route: 008

REACTIONS (1)
  - Device leakage [None]

NARRATIVE: CASE EVENT DATE: 20170706
